FAERS Safety Report 9737495 (Version 1)
Quarter: 2013Q4

REPORT INFORMATION
  Report Type: Spontaneous
  Country: BR (occurrence: BR)
  Receive Date: 20131206
  Receipt Date: 20131206
  Transmission Date: 20140711
  Serious: Yes (Hospitalization, Disabling)
  Sender: FDA-Public Use
  Company Number: BR-ASTRAZENECA-2013SE88490

PATIENT
  Age: 751 Month
  Sex: Female
  Weight: 78 kg

DRUGS (9)
  1. SELOZOK [Suspect]
     Indication: CARDIOVASCULAR EVENT PROPHYLAXIS
     Route: 048
     Dates: start: 2010
  2. SELOZOK [Suspect]
     Indication: HYPERTENSION
     Route: 048
     Dates: start: 2010
  3. OMEPRAZOLE [Suspect]
     Indication: PROPHYLAXIS AGAINST GASTROINTESTINAL ULCER
     Dosage: UNKNOWN, DAILY
     Route: 048
     Dates: start: 201306
  4. BRILINTA [Suspect]
     Indication: MYOCARDIAL INFARCTION
     Route: 048
     Dates: start: 201306
  5. ATENSINA [Concomitant]
     Indication: HYPERTENSION
     Dosage: UNKNOWN, TWO TIMES A DAY
     Route: 048
     Dates: start: 2010
  6. APRESOLINA [Concomitant]
     Indication: HYPERTENSION
     Route: 048
     Dates: start: 2010
  7. PURAN T4 [Concomitant]
     Indication: THYROID DISORDER
     Dosage: UNKNOWN, DAILY
     Route: 048
     Dates: start: 2010
  8. ATORVASTATIN [Concomitant]
     Indication: BLOOD CHOLESTEROL INCREASED
     Dosage: UNKNOWN, DAILY
     Route: 048
     Dates: start: 2010
  9. ASA [Concomitant]
     Indication: CARDIAC DISORDER
     Dosage: UNKNOWN, DAILY
     Route: 048
     Dates: start: 2010

REACTIONS (2)
  - Myocardial infarction [Recovered/Resolved]
  - Limb injury [Recovered/Resolved]
